FAERS Safety Report 10744408 (Version 1)
Quarter: 2015Q1

REPORT INFORMATION
  Report Type: Report from Study
  Country: CA (occurrence: CA)
  Receive Date: 20150128
  Receipt Date: 20150128
  Transmission Date: 20150721
  Serious: Yes (Other)
  Sender: FDA-Public Use
  Company Number: CA-JNJFOC-20150113616

PATIENT
  Sex: Female
  Weight: 48.5 kg

DRUGS (3)
  1. REMICADE [Suspect]
     Active Substance: INFLIXIMAB
     Indication: ANAL FISTULA
     Dosage: 300.0 MG 0-2-6
     Route: 042
     Dates: start: 20150114, end: 20150120
  2. REMICADE [Suspect]
     Active Substance: INFLIXIMAB
     Indication: CROHN^S DISEASE
     Dosage: 300.0 MG 0-2-6
     Route: 042
     Dates: start: 20150114, end: 20150120
  3. REMICADE [Suspect]
     Active Substance: INFLIXIMAB
     Indication: APHTHOUS STOMATITIS
     Dosage: 300.0 MG 0-2-6
     Route: 042
     Dates: start: 20150114, end: 20150120

REACTIONS (1)
  - Mass [Unknown]
